FAERS Safety Report 6471652-X (Version None)
Quarter: 2009Q4

REPORT INFORMATION
  Report Type: 
  Country: None (occurrence: None)
  Receive Date: 20091203
  Receipt Date: 20080520
  Transmission Date: 20100525
  Serious: Yes (Hospitalization, Other)
  Sender: FDA-Public Use
  Company Number: US-ELI_LILLY_AND_COMPANY-US200803003997

PATIENT
  Sex: Male

DRUGS (18)
  1. HUMALOG MIX 75/25 [Suspect]
     Dosage: UNK, UNK
     Dates: start: 20080313
  2. HUMALOG [Suspect]
     Dosage: 7 U, UNK
  3. HUMALOG [Suspect]
     Dosage: 7 U, AT NOON
  4. HUMALOG [Suspect]
     Dosage: 3 U, UNK
  5. HUMULIN N [Suspect]
     Dosage: 7 U, EACH MORNING
  6. HUMULIN N [Suspect]
     Dosage: 2 U, EACH EVENING
  7. ASPIRIN [Concomitant]
  8. COUMADIN [Concomitant]
  9. SYNTHROID [Concomitant]
     Dosage: 50 MEQ, DAILY (1/D)
  10. COZAAR [Concomitant]
     Dosage: 50 MG, DAILY (1/D)
     Route: 048
  11. HYDROCHLOROTHIAZIDE [Concomitant]
     Dosage: 25 MG, DAILY (1/D)
  12. ZETIA [Concomitant]
     Dosage: 10 MG, DAILY (1/D)
  13. TRUSOPT [Concomitant]
     Dosage: 1 UNK, DAILY (1/D)
  14. FORADIL [Concomitant]
     Dosage: 12 MEQ, 2/D
     Route: 055
  15. PLAVIX [Concomitant]
     Dosage: 75 MG, DAILY (1/D)
  16. SPIRIVA [Concomitant]
  17. XALATAN [Concomitant]
     Dosage: UNK, DAILY (1/D)
  18. NOVOLOG [Concomitant]
     Dates: start: 20071101

REACTIONS (15)
  - ACUTE CORONARY SYNDROME [None]
  - ATRIAL FIBRILLATION [None]
  - BLOOD GLUCOSE INCREASED [None]
  - CARDIAC ENZYMES INCREASED [None]
  - CHRONIC OBSTRUCTIVE PULMONARY DISEASE [None]
  - COUGH [None]
  - GLAUCOMA [None]
  - HYPERLIPIDAEMIA [None]
  - HYPERTENSION [None]
  - HYPOGLYCAEMIA [None]
  - HYPOTHYROIDISM [None]
  - LOSS OF CONSCIOUSNESS [None]
  - MYOCARDIAL INFARCTION [None]
  - RENAL FAILURE ACUTE [None]
  - WRONG DRUG ADMINISTERED [None]
